FAERS Safety Report 17020124 (Version 3)
Quarter: 2021Q2

REPORT INFORMATION
  Report Type: Report from Study
  Country: BR (occurrence: BR)
  Receive Date: 20191112
  Receipt Date: 20210607
  Transmission Date: 20210716
  Serious: Yes (Other)
  Sender: FDA-Public Use
  Company Number: BR-EMD SERONO-9127357

PATIENT
  Age: 61 Year
  Sex: Female

DRUGS (2)
  1. BIO?MANGUINHOS BETAINTERFERONA 1A 44 MCG [Suspect]
     Active Substance: INTERFERON BETA-1A
     Indication: MULTIPLE SCLEROSIS
     Route: 058
     Dates: start: 20191002
  2. REBIF [Suspect]
     Active Substance: INTERFERON BETA-1A
     Indication: MULTIPLE SCLEROSIS
     Route: 058
     Dates: start: 20160531

REACTIONS (9)
  - Laboratory test abnormal [Not Recovered/Not Resolved]
  - Hypothyroidism [Recovering/Resolving]
  - Chills [Recovered/Resolved]
  - Insomnia [Recovering/Resolving]
  - Immunodeficiency [Not Recovered/Not Resolved]
  - Fatigue [Recovering/Resolving]
  - Muscle tightness [Not Recovered/Not Resolved]
  - Pain [Recovering/Resolving]
  - Memory impairment [Not Recovered/Not Resolved]

NARRATIVE: CASE EVENT DATE: 2019
